FAERS Safety Report 14586990 (Version 1)
Quarter: 2018Q1

REPORT INFORMATION
  Report Type: Spontaneous
  Country: US (occurrence: US)
  Receive Date: 20180301
  Receipt Date: 20180301
  Transmission Date: 20180509
  Serious: No
  Sender: FDA-Public Use
  Company Number: US-BEH-2018088344

PATIENT
  Sex: Male
  Weight: 79.37 kg

DRUGS (10)
  1. HAEGARDA [Suspect]
     Active Substance: HUMAN C1-ESTERASE INHIBITOR
     Indication: HEREDITARY ANGIOEDEMA
     Dosage: 5000 IU, BIW
     Route: 058
     Dates: start: 20180122
  2. ATORVASTATIN [Concomitant]
     Active Substance: ATORVASTATIN
  3. HAEGARDA [Suspect]
     Active Substance: HUMAN C1-ESTERASE INHIBITOR
     Indication: PROPHYLAXIS
     Dosage: UNK
     Route: 058
  4. ASPIRIN (E.C.) [Concomitant]
     Active Substance: ASPIRIN
  5. HAEGARDA [Suspect]
     Active Substance: HUMAN C1-ESTERASE INHIBITOR
     Dosage: UNK
     Route: 058
  6. CENTRUM SILVER                     /02363801/ [Concomitant]
     Active Substance: MINERALS\VITAMINS
  7. OMEPRAZOLE. [Concomitant]
     Active Substance: OMEPRAZOLE
  8. METFORMIN [Concomitant]
     Active Substance: METFORMIN HYDROCHLORIDE
  9. CLOPIDOGREL [Concomitant]
     Active Substance: CLOPIDOGREL BISULFATE
  10. EPINEPHRINE. [Concomitant]
     Active Substance: EPINEPHRINE

REACTIONS (2)
  - Dry skin [Unknown]
  - Pruritus [Unknown]
